FAERS Safety Report 4808066-1 (Version None)
Quarter: 2005Q4

REPORT INFORMATION
  Report Type: 
  Country: None (occurrence: None)
  Receive Date: 20051021
  Receipt Date: 20051011
  Transmission Date: 20060501
  Serious: Yes (Death)
  Sender: FDA-Public Use
  Company Number: GXKR2005US01779

PATIENT

DRUGS (1)
  1. PARACETAMOL (NGX) (PARACETAMOL) [Suspect]

REACTIONS (8)
  - ACIDOSIS [None]
  - AZOTAEMIA [None]
  - COMA [None]
  - DRUG TOXICITY [None]
  - HYPOTENSION [None]
  - LIVER FUNCTION TEST ABNORMAL [None]
  - OVERDOSE [None]
  - RENAL FAILURE ACUTE [None]
